FAERS Safety Report 12273723 (Version 3)
Quarter: 2016Q2

REPORT INFORMATION
  Report Type: Report from Study
  Country: US (occurrence: US)
  Receive Date: 20160415
  Receipt Date: 20160502
  Transmission Date: 20160815
  Serious: Yes (Death, Hospitalization, Other)
  Sender: FDA-Public Use
  Company Number: US-ABBVIE-16K-163-1605027-00

PATIENT
  Age: 65 Year
  Sex: Female
  Weight: 81.72 kg

DRUGS (4)
  1. HYDROCHLOROTHIAZIDE W/TRIAMTERENE [Concomitant]
     Active Substance: HYDROCHLOROTHIAZIDE\TRIAMTERENE
     Indication: FLUID RETENTION
  2. HUMIRA [Suspect]
     Active Substance: ADALIMUMAB
     Indication: COLITIS ULCERATIVE
     Route: 058
     Dates: start: 201602, end: 20160331
  3. LEXAPRO [Concomitant]
     Active Substance: ESCITALOPRAM OXALATE
     Indication: ANXIETY
  4. ARMOUR THYROID [Concomitant]
     Active Substance: THYROID, PORCINE
     Indication: HYPOTHYROIDISM

REACTIONS (7)
  - Thrombotic stroke [Fatal]
  - Pulmonary embolism [Fatal]
  - Hypoaesthesia [Not Recovered/Not Resolved]
  - Palpitations [Recovered/Resolved]
  - Colitis ulcerative [Recovering/Resolving]
  - Seizure [Not Recovered/Not Resolved]
  - Atrial fibrillation [Recovered/Resolved]

NARRATIVE: CASE EVENT DATE: 201603
